FAERS Safety Report 11552435 (Version 1)
Quarter: 2015Q3

REPORT INFORMATION
  Report Type: Spontaneous
  Country: US (occurrence: US)
  Receive Date: 20150925
  Receipt Date: 20150925
  Transmission Date: 20151125
  Serious: No
  Sender: FDA-Public Use
  Company Number: US-LUPIN PHARMACEUTICALS INC.-E2B_00003779

PATIENT
  Sex: Female

DRUGS (1)
  1. CEPHALEXIN CAPSULES USP 250 MG [Suspect]
     Active Substance: CEPHALEXIN
     Indication: URINARY TRACT INFECTION
     Dates: start: 20150602, end: 20150611

REACTIONS (2)
  - Pruritus [Not Recovered/Not Resolved]
  - Product odour abnormal [Unknown]
